FAERS Safety Report 16060986 (Version 1)
Quarter: 2019Q1

REPORT INFORMATION
  Report Type: Spontaneous
  Country: US (occurrence: US)
  Receive Date: 20190312
  Receipt Date: 20190312
  Transmission Date: 20190418
  Serious: No
  Sender: FDA-Public Use
  Company Number: US-ROCHE-2109484

PATIENT
  Sex: Female

DRUGS (1)
  1. AVASTIN [Suspect]
     Active Substance: BEVACIZUMAB
     Indication: COLON CANCER METASTATIC
     Dosage: ONGOING: UNKNOWN
     Route: 065

REACTIONS (3)
  - Hyperlipidaemia [Recovered/Resolved]
  - Blood triglycerides increased [Recovered/Resolved]
  - Blood cholesterol increased [Recovered/Resolved]
